FAERS Safety Report 11398516 (Version 1)
Quarter: 2015Q3

REPORT INFORMATION
  Report Type: Report from Study
  Country: US (occurrence: US)
  Receive Date: 20150820
  Receipt Date: 20150820
  Transmission Date: 20151125
  Serious: Yes (Hospitalization, Other)
  Sender: FDA-Public Use
  Company Number: US-AMGEN-USASL2015083826

PATIENT
  Age: 78 Year
  Sex: Female

DRUGS (1)
  1. ENBREL [Suspect]
     Active Substance: ETANERCEPT
     Indication: RHEUMATOID ARTHRITIS
     Dosage: 50 MG, QWK
     Route: 065
     Dates: end: 201503

REACTIONS (6)
  - Pneumonia [Unknown]
  - Abdominal hernia obstructive [Recovered/Resolved]
  - Immune system disorder [Unknown]
  - Diarrhoea [Not Recovered/Not Resolved]
  - Thrombosis [Unknown]
  - Vomiting [Unknown]
